FAERS Safety Report 12345490 (Version 3)
Quarter: 2017Q2

REPORT INFORMATION
  Report Type: Report from Study
  Country: IT (occurrence: IT)
  Receive Date: 20160509
  Receipt Date: 20170517
  Transmission Date: 20170830
  Serious: Yes (Other)
  Sender: FDA-Public Use
  Company Number: IT-ROCHE-1751904

PATIENT

DRUGS (6)
  1. PREDNISONE. [Suspect]
     Active Substance: PREDNISONE
     Indication: NON-HODGKIN^S LYMPHOMA
     Dosage: FOR A MAXIMUM OF 6 CYCLES
     Route: 065
  2. DOXORUBICIN [Suspect]
     Active Substance: DOXORUBICIN
     Indication: NON-HODGKIN^S LYMPHOMA
     Dosage: FOR A MAXIMUM OF 6 CYCLES
     Route: 065
  3. VINCRISTINE [Suspect]
     Active Substance: VINCRISTINE
     Indication: NON-HODGKIN^S LYMPHOMA
     Dosage: FOR A MAXIMUM OF 6 CYCLES
     Route: 065
  4. BENDAMUSTINE [Suspect]
     Active Substance: BENDAMUSTINE
     Indication: NON-HODGKIN^S LYMPHOMA
     Dosage: ON DAY 1 AND 2 EVERY 4 WEEKS FOR UPTO 6 CYCLES
     Route: 065
  5. CYCLOPHOSPHAMIDE. [Suspect]
     Active Substance: CYCLOPHOSPHAMIDE
     Indication: NON-HODGKIN^S LYMPHOMA
     Dosage: FOR A MAXIMUM OF 6 CYCLES
     Route: 065
  6. RITUXIMAB [Suspect]
     Active Substance: RITUXIMAB
     Indication: NON-HODGKIN^S LYMPHOMA
     Dosage: ON DAY 1 OF CYCLE
     Route: 042

REACTIONS (18)
  - Diffuse large B-cell lymphoma [Unknown]
  - Alopecia [Unknown]
  - Nausea [Unknown]
  - Erythema [Unknown]
  - Malignant melanoma [Unknown]
  - Neutropenia [Unknown]
  - Thrombocytopenia [Unknown]
  - Paraesthesia [Unknown]
  - Anaemia [Unknown]
  - Breast cancer [Unknown]
  - Pancreatic carcinoma [Unknown]
  - Infection [Unknown]
  - Myelodysplastic syndrome [Unknown]
  - Basal cell carcinoma [Unknown]
  - Lung neoplasm malignant [Unknown]
  - Colon cancer [Unknown]
  - Myeloid leukaemia [Unknown]
  - Prostate cancer [Unknown]
